FAERS Safety Report 5008439-0 (Version None)
Quarter: 2006Q2

REPORT INFORMATION
  Report Type: 
  Country: None (occurrence: None)
  Receive Date: 20060523
  Receipt Date: 20060512
  Transmission Date: 20061013
  Serious: Yes (Death)
  Sender: FDA-Public Use
  Company Number: US-JNJFOC-20060501221

PATIENT
  Age: 10 Year
  Sex: Female

DRUGS (13)
  1. CHILDREN'S MOTRIN [Suspect]
  2. CHILDREN'S MOTRIN [Suspect]
     Indication: DRUG USE FOR UNKNOWN INDICATION
  3. FLAGYL [Suspect]
  4. DILANTIN [Concomitant]
     Dosage: REDUCED TO SUB-THERAPEUTIC LEVELS
  5. DILANTIN [Concomitant]
  6. COLACE [Concomitant]
  7. PEPCID [Concomitant]
  8. DECADRON SRC [Concomitant]
  9. TYLENOL (GELTAB) [Concomitant]
  10. PROVENTIL [Concomitant]
  11. VANCOMYCIN [Concomitant]
     Indication: PNEUMONIA
  12. CEFEPIME [Concomitant]
     Indication: PNEUMONIA
  13. CEFEPIME [Concomitant]

REACTIONS (1)
  - TOXIC EPIDERMAL NECROLYSIS [None]
